FAERS Safety Report 19202778 (Version 2)
Quarter: 2021Q3

REPORT INFORMATION
  Report Type: Spontaneous
  Country: IT (occurrence: IT)
  Receive Date: 20210430
  Receipt Date: 20210705
  Transmission Date: 20211014
  Serious: Yes (Other)
  Sender: FDA-Public Use
  Company Number: IT-AMGEN-ITASP2021061565

PATIENT
  Age: 80 Year
  Sex: Female

DRUGS (1)
  1. MVASI [Suspect]
     Active Substance: BEVACIZUMAB-AWWB
     Indication: NEOVASCULAR AGE-RELATED MACULAR DEGENERATION
     Dosage: 0.5 MICROGRAM, CYCLICAL
     Route: 065
     Dates: start: 20201011, end: 20210303

REACTIONS (4)
  - Retinal haemorrhage [Unknown]
  - Visual impairment [Unknown]
  - Macular oedema [Unknown]
  - Product substitution [Unknown]

NARRATIVE: CASE EVENT DATE: 20210325
